FAERS Safety Report 8881487 (Version 1)
Quarter: 2012Q4

REPORT INFORMATION
  Report Type: 
  Country: US (occurrence: US)
  Receive Date: 20121101
  Receipt Date: 20121101
  Transmission Date: 20130627
  Serious: No
  Sender: FDA-Public Use
  Company Number: US-ASTRAZENECA-2012SE80521

PATIENT
  Age: 90 Year
  Sex: Female
  Weight: 45.4 kg

DRUGS (3)
  1. CRESTOR [Suspect]
     Indication: BLOOD CHOLESTEROL INCREASED
     Route: 048
     Dates: start: 20120806
  2. CO Q 10 ENZYME [Concomitant]
  3. ASPIRIN [Concomitant]

REACTIONS (3)
  - C-reactive protein increased [Unknown]
  - Heart rate increased [Unknown]
  - Off label use [Unknown]
